FAERS Safety Report 8913150 (Version 5)
Quarter: 2013Q3

REPORT INFORMATION
  Report Type: Spontaneous
  Country: US (occurrence: US)
  Receive Date: 20121116
  Receipt Date: 20130716
  Transmission Date: 20140515
  Serious: Yes (Death, Hospitalization, Other)
  Sender: FDA-Public Use
  Company Number: US-009507513-1201USA01963

PATIENT
  Sex: Female

DRUGS (2)
  1. FOSAMAX [Suspect]
     Indication: OSTEOPOROSIS
     Dosage: 70 MG, QW
     Route: 048
     Dates: start: 200307, end: 200711
  2. BONIVA [Suspect]
     Indication: OSTEOPOROSIS
     Dosage: 150 MG, QM
     Route: 048
     Dates: start: 200711, end: 200901

REACTIONS (56)
  - Femur fracture [Unknown]
  - Intramedullary rod insertion [Unknown]
  - Post procedural complication [Fatal]
  - Cerebrovascular accident [Unknown]
  - Mitral valve replacement [Unknown]
  - Kyphosis [Unknown]
  - Surgery [Unknown]
  - Large intestine benign neoplasm [Unknown]
  - Hyperthyroidism [Unknown]
  - Arteriosclerosis coronary artery [Unknown]
  - Pathological fracture [Unknown]
  - Aortic valve replacement [Unknown]
  - Fall [Unknown]
  - Essential hypertension [Not Recovered/Not Resolved]
  - Spinal compression fracture [Unknown]
  - Soft tissue disorder [Unknown]
  - Scoliosis [Unknown]
  - Cholelithiasis [Unknown]
  - Spinal compression fracture [Unknown]
  - Intervertebral disc protrusion [Unknown]
  - Facet joint syndrome [Unknown]
  - Lumbar spinal stenosis [Unknown]
  - Oesophageal motility disorder [Unknown]
  - Cardiac failure congestive [Unknown]
  - Parkinson^s disease [Unknown]
  - Parkinson^s disease [Unknown]
  - Left ventricular hypertrophy [Unknown]
  - Dilatation atrial [Unknown]
  - Pulmonary hypertension [Unknown]
  - Aortic valve incompetence [Unknown]
  - Pulmonary valve incompetence [Unknown]
  - Tricuspid valve incompetence [Unknown]
  - Cardiac murmur [Unknown]
  - Spinal compression fracture [Unknown]
  - Cardiomegaly [Unknown]
  - Gallbladder disorder [Unknown]
  - Bladder dilatation [Unknown]
  - Urinary tract infection [Unknown]
  - Contusion [Unknown]
  - Osteoporosis [Unknown]
  - Body height decreased [Unknown]
  - Pain [Unknown]
  - International normalised ratio increased [Recovered/Resolved]
  - Ligament sprain [Unknown]
  - Foot fracture [Unknown]
  - Faecaloma [Unknown]
  - Coronary artery disease [Unknown]
  - Osteosclerosis [Unknown]
  - Colon adenoma [Unknown]
  - Diverticulum [Unknown]
  - Constipation [Unknown]
  - Abdominal pain [Unknown]
  - Abdominal distension [Unknown]
  - Nausea [Unknown]
  - Oedema peripheral [Unknown]
  - Vomiting [Unknown]
